FAERS Safety Report 6098281-4 (Version None)
Quarter: 2009Q1

REPORT INFORMATION
  Report Type: 
  Country: None (occurrence: None)
  Receive Date: 20090227
  Receipt Date: 20090212
  Transmission Date: 20090719
  Serious: Yes (Hospitalization)
  Sender: FDA-Public Use
  Company Number: FR-GENENTECH-266970

PATIENT
  Sex: Female

DRUGS (1)
  1. RITUXIMAB [Suspect]
     Indication: NON-HODGKIN'S LYMPHOMA
     Dosage: 590.7 MG, UNK
     Route: 042
     Dates: start: 20000211

REACTIONS (2)
  - FEBRILE NEUTROPENIA [None]
  - URINARY TRACT INFECTION [None]
